FAERS Safety Report 12536992 (Version 1)
Quarter: 2016Q3

REPORT INFORMATION
  Report Type: Spontaneous
  Country: US (occurrence: US)
  Receive Date: 20160707
  Receipt Date: 20160707
  Transmission Date: 20161109
  Serious: Yes (Hospitalization)
  Sender: FDA-Public Use
  Company Number: US-INDIVIOR LIMITED-INDV-091873-2016

PATIENT
  Age: 62 Year
  Sex: Male

DRUGS (3)
  1. SUBOXONE [Suspect]
     Active Substance: BUPRENORPHINE HYDROCHLORIDE\NALOXONE HYDROCHLORIDE
     Indication: DRUG DEPENDENCE
     Dosage: 12MG, TWICE A DAY FOR ABOUT 5 YEARS
     Route: 060
     Dates: start: 2011, end: 20160625
  2. SUBOXONE [Suspect]
     Active Substance: BUPRENORPHINE HYDROCHLORIDE\NALOXONE HYDROCHLORIDE
     Indication: DRUG DEPENDENCE
     Dosage: UNK
     Route: 060
     Dates: start: 2005, end: 2009
  3. SUBOXONE [Suspect]
     Active Substance: BUPRENORPHINE HYDROCHLORIDE\NALOXONE HYDROCHLORIDE
     Dosage: UNK
     Route: 060
     Dates: start: 2009, end: 2011

REACTIONS (5)
  - Product preparation error [Recovered/Resolved]
  - Drug withdrawal syndrome [Recovered/Resolved]
  - Colon cancer [Recovered/Resolved]
  - Abdominal hernia [Not Recovered/Not Resolved]
  - Intentional product misuse [Recovered/Resolved]

NARRATIVE: CASE EVENT DATE: 2009
